FAERS Safety Report 10274836 (Version 2)
Quarter: 2014Q4

REPORT INFORMATION
  Report Type: Spontaneous
  Country: US (occurrence: US)
  Receive Date: 20140702
  Receipt Date: 20141113
  Transmission Date: 20150528
  Serious: No
  Sender: FDA-Public Use
  Company Number: US-009507513-1406USA009149

PATIENT
  Age: 20 Year
  Sex: Female
  Weight: 115 kg

DRUGS (1)
  1. NEXPLANON [Suspect]
     Active Substance: ETONOGESTREL
     Indication: CONTRACEPTION
     Dosage: 1 DF, 1 ROD FOR 3 YEARS
     Route: 059
     Dates: start: 20130530

REACTIONS (6)
  - Mood swings [Unknown]
  - Menstruation delayed [Unknown]
  - Metrorrhagia [Unknown]
  - Anger [Unknown]
  - Breast mass [Unknown]
  - Vaginal discharge [Unknown]

NARRATIVE: CASE EVENT DATE: 201403
